FAERS Safety Report 8773248 (Version 1)
Quarter: 2012Q4

REPORT INFORMATION
  Report Type: 
  Country: MX (occurrence: MX)
  Receive Date: 20120907
  Receipt Date: 20120907
  Transmission Date: 20130627
  Serious: Yes (Congenital Anomaly)
  Sender: FDA-Public Use
  Company Number: PHHY2012MX076728

PATIENT
  Sex: Female

DRUGS (5)
  1. CARBAMAZEPINE [Suspect]
     Indication: GRAND MAL CONVULSION
     Dosage: Mother dose 800mg daily
     Route: 064
  2. PHENYTOIN [Suspect]
     Indication: GRAND MAL CONVULSION
     Dosage: Mother dose 300mg daily
     Route: 064
  3. CLONAZEPAM [Suspect]
     Indication: GRAND MAL CONVULSION
     Route: 064
  4. POLYVITAMIN [Concomitant]
     Route: 064
  5. FOLIC ACID [Concomitant]
     Route: 064

REACTIONS (3)
  - Ventricular septal defect [Unknown]
  - Foetal exposure during pregnancy [Unknown]
  - Maternal drugs affecting foetus [None]
